FAERS Safety Report 15621880 (Version 1)
Quarter: 2018Q4

REPORT INFORMATION
  Report Type: Spontaneous
  Country: CA (occurrence: CA)
  Receive Date: 20181115
  Receipt Date: 20181115
  Transmission Date: 20190205
  Serious: Yes (Other)
  Sender: FDA-Public Use
  Company Number: CA-BRACCO-2018CA05912

PATIENT
  Age: 12 Year
  Sex: Male

DRUGS (2)
  1. IODOTOPE [Suspect]
     Active Substance: SODIUM IODIDE I-131
     Indication: RADIOACTIVE IODINE THERAPY
     Dosage: 100 MCI, UNK
  2. IODOTOPE [Suspect]
     Active Substance: SODIUM IODIDE I-131
     Indication: RADIOACTIVE IODINE THERAPY
     Dosage: 150 MCI, UNK

REACTIONS (1)
  - Lung neoplasm malignant [Recovering/Resolving]
